FAERS Safety Report 11772118 (Version 1)
Quarter: 2015Q4

REPORT INFORMATION
  Report Type: Spontaneous
  Country: US (occurrence: US)
  Receive Date: 20151124
  Receipt Date: 20151124
  Transmission Date: 20160304
  Serious: No
  Sender: FDA-Public Use
  Company Number: US-WEST-WARD PHARMACEUTICALS CORP.-US-H14001-15-01840

PATIENT
  Age: 29 Year
  Sex: Female
  Weight: 105.33 kg

DRUGS (4)
  1. PROGESTERONE. [Suspect]
     Active Substance: PROGESTERONE
     Indication: PROGESTERONE DECREASED
     Dosage: 200 MG IN EACH HIP
     Route: 030
     Dates: start: 20150720, end: 201510
  2. PROGESTERONE. [Suspect]
     Active Substance: PROGESTERONE
     Dosage: 200 MG IN EACH HIP
     Route: 030
     Dates: start: 201510
  3. PRENATAL VITAMINS [Concomitant]
     Active Substance: VITAMINS
     Indication: PRODUCT USED FOR UNKNOWN INDICATION
     Route: 065
  4. PROGESTERONE. [Suspect]
     Active Substance: PROGESTERONE
     Dosage: 200 MG IN EACH HIP
     Route: 030
     Dates: start: 20151012, end: 20151015

REACTIONS (3)
  - Injection site urticaria [Recovering/Resolving]
  - Injection site pruritus [Recovered/Resolved]
  - Exposure during pregnancy [Not Recovered/Not Resolved]

NARRATIVE: CASE EVENT DATE: 2015
